FAERS Safety Report 5906802-4 (Version None)
Quarter: 2008Q3

REPORT INFORMATION
  Report Type: 
  Country: None (occurrence: None)
  Receive Date: 20080929
  Receipt Date: 20080925
  Transmission Date: 20090109
  Serious: Yes (Other)
  Sender: FDA-Public Use
  Company Number: CIP08000448

PATIENT
  Sex: Female

DRUGS (2)
  1. ASACOL [Suspect]
     Dosage: ORAL
     Route: 048
     Dates: start: 20080201
  2. ASACOL [Suspect]
     Dosage: ORAL
     Route: 048
     Dates: start: 20080201

REACTIONS (2)
  - HEADACHE [None]
  - INTRACRANIAL ANEURYSM [None]
